FAERS Safety Report 5744837-5 (Version None)
Quarter: 2008Q2

REPORT INFORMATION
  Report Type: 
  Country: None (occurrence: None)
  Receive Date: 20080520
  Receipt Date: 20080513
  Transmission Date: 20081010
  Serious: Yes (Other)
  Sender: FDA-Public Use
  Company Number: FR-PFIZER INC-2008041588

PATIENT
  Sex: Female

DRUGS (4)
  1. TAHOR [Suspect]
     Indication: DYSLIPIDAEMIA
     Route: 048
     Dates: start: 20070801, end: 20080131
  2. EVISTA [Suspect]
     Indication: OSTEOPOROSIS
     Route: 048
     Dates: start: 20080102, end: 20080212
  3. ACETAMINOPHEN [Concomitant]
     Route: 048
  4. TRAMADOL HCL [Concomitant]

REACTIONS (4)
  - BURSITIS [None]
  - CYTOLYTIC HEPATITIS [None]
  - MUSCULOSKELETAL PAIN [None]
  - TENDON DISORDER [None]
